FAERS Safety Report 16795271 (Version 2)
Quarter: 2019Q3

REPORT INFORMATION
  Report Type: Report from Study
  Country: US (occurrence: US)
  Receive Date: 20190911
  Receipt Date: 20190925
  Transmission Date: 20191005
  Serious: Yes (Other)
  Sender: FDA-Public Use
  Company Number: US-JNJFOC-20190906735

PATIENT
  Sex: Female

DRUGS (12)
  1. DILTIAZEM HCL [Concomitant]
     Active Substance: DILTIAZEM HYDROCHLORIDE
     Dosage: UNK
  2. RESVERATROL [Concomitant]
     Active Substance: DIETARY SUPPLEMENT\RESVERATROL
     Dosage: UNK
  3. WARFARIN SODIUM. [Suspect]
     Active Substance: WARFARIN SODIUM
     Indication: PRODUCT USED FOR UNKNOWN INDICATION
  4. OMEGA 3                            /01333901/ [Concomitant]
     Active Substance: FISH OIL\TOCOPHEROL
     Dosage: UNK
  5. LOSARTAN POTASSIUM. [Concomitant]
     Active Substance: LOSARTAN POTASSIUM
     Dosage: UNK
  6. GARLIC                             /01570501/ [Concomitant]
     Active Substance: GARLIC
     Dosage: UNK
  7. IMBRUVICA [Suspect]
     Active Substance: IBRUTINIB
     Indication: CHRONIC LYMPHOCYTIC LEUKAEMIA
     Dosage: 140 MG, QD
     Route: 048
     Dates: start: 20190715
  8. IMBRUVICA [Suspect]
     Active Substance: IBRUTINIB
     Dosage: 140 MG, QD
     Route: 048
     Dates: start: 20190716
  9. GLUCOSAMINE CHONDROITIN MSM [Concomitant]
     Dosage: UNK
  10. COENZYME Q10 [Concomitant]
     Active Substance: UBIDECARENONE
     Dosage: UNK
  11. TURMERIC                           /01079602/ [Concomitant]
     Active Substance: HERBALS\TURMERIC
  12. KEFLEX [Concomitant]
     Active Substance: CEPHALEXIN
     Dosage: UNK

REACTIONS (2)
  - Platelet count decreased [Recovered/Resolved]
  - Epistaxis [Recovered/Resolved]
